FAERS Safety Report 10336781 (Version 2)
Quarter: 2014Q3

REPORT INFORMATION
  Report Type: Spontaneous
  Country: US (occurrence: US)
  Receive Date: 20140723
  Receipt Date: 20140723
  Transmission Date: 20150326
  Serious: No
  Sender: FDA-Public Use
  Company Number: US-GALDERMA-US14000138

PATIENT
  Age: 63 Year
  Sex: Female

DRUGS (8)
  1. XERESE [Concomitant]
     Active Substance: ACYCLOVIR\HYDROCORTISONE
     Dosage: 5%/1%
     Route: 061
     Dates: start: 20131231
  2. ORACEA [Suspect]
     Active Substance: DOXYCYCLINE
     Indication: ROSACEA
     Dosage: 40 MG
     Route: 048
     Dates: start: 20140101, end: 20140106
  3. MULTIVITAMIN [Concomitant]
     Active Substance: VITAMINS
     Route: 048
  4. CERAVE MOISTURIZIER [Concomitant]
     Indication: DRY SKIN PROPHYLAXIS
     Route: 061
  5. CERAVE CLEANSER [Concomitant]
     Indication: THERAPEUTIC SKIN CARE TOPICAL
     Route: 061
  6. FINACEA [Concomitant]
     Active Substance: AZELAIC ACID
     Dosage: 15%
     Route: 061
     Dates: start: 20120419
  7. CENTRUM 50 [Concomitant]
     Indication: VITAMIN SUPPLEMENTATION
     Route: 048
  8. VALACYCLOVIR [Concomitant]
     Active Substance: VALACYCLOVIR HYDROCHLORIDE
     Indication: ORAL HERPES
     Dates: start: 20131231

REACTIONS (6)
  - Pain in extremity [Recovered/Resolved]
  - Arthralgia [Recovered/Resolved]
  - Peripheral swelling [Recovered/Resolved]
  - Pain [Recovered/Resolved]
  - Gait disturbance [Recovered/Resolved]
  - Hypersensitivity [Recovered/Resolved]

NARRATIVE: CASE EVENT DATE: 20140104
